FAERS Safety Report 6550362-4 (Version None)
Quarter: 2010Q1

REPORT INFORMATION
  Report Type: 
  Country: None (occurrence: None)
  Receive Date: 20100125
  Receipt Date: 20091211
  Transmission Date: 20100710
  Serious: Yes (Other)
  Sender: FDA-Public Use
  Company Number: JP-ROCHE-680376

PATIENT
  Sex: Female

DRUGS (16)
  1. TOCILIZUMAB [Suspect]
     Indication: RHEUMATOID ARTHRITIS
     Route: 041
     Dates: start: 20090514, end: 20090514
  2. TOCILIZUMAB [Suspect]
     Route: 041
     Dates: start: 20090609, end: 20090609
  3. TOCILIZUMAB [Suspect]
     Route: 041
     Dates: start: 20090714, end: 20090714
  4. TOCILIZUMAB [Suspect]
     Route: 041
     Dates: start: 20090811, end: 20090811
  5. TOCILIZUMAB [Suspect]
     Route: 041
     Dates: start: 20090908, end: 20090908
  6. TOCILIZUMAB [Suspect]
     Route: 041
     Dates: start: 20091006, end: 20091006
  7. TOCILIZUMAB [Suspect]
     Route: 041
     Dates: start: 20091105
  8. PREDNISOLONE [Suspect]
     Indication: RHEUMATOID ARTHRITIS
     Route: 048
  9. METHOTREXATE [Suspect]
     Indication: RHEUMATOID ARTHRITIS
     Route: 048
  10. LOXONIN [Concomitant]
     Dosage: DOSE FORM: ORAL FORMULATION (NOT OTHERWISE SPECIFIED)
     Route: 048
  11. CLARITH [Concomitant]
     Route: 048
  12. FOLIAMIN [Concomitant]
     Dosage: DOSE FORM: ORAL FORMULATION (NOT OTHERWISE SPECIFIED)
     Route: 048
  13. FLAVITAN [Concomitant]
     Route: 048
     Dates: end: 20090826
  14. DEXALTIN [Concomitant]
     Dosage: ROUTE: OROPHARINGEAL, NOTE: DOSAGE ADJUSTED
     Route: 050
     Dates: end: 20090826
  15. BONALON [Concomitant]
     Route: 048
  16. FELBINAC [Concomitant]
     Dosage: REPORTED DRUG: SELTOUCH(FELBINAC), DOSE FORM: TAPE, NOTE: DOSAGE ADJUSTED
     Route: 061

REACTIONS (1)
  - BRONCHOPNEUMONIA [None]
